FAERS Safety Report 9379801 (Version 1)
Quarter: 2013Q2

REPORT INFORMATION
  Report Type: Spontaneous
  Country: KR (occurrence: None)
  Receive Date: 20130627
  Receipt Date: 20130627
  Transmission Date: 20140414
  Serious: Yes (Hospitalization)
  Sender: FDA-Public Use
  Company Number: NSR_01162_2013

PATIENT
  Age: 50 Year
  Sex: Female

DRUGS (4)
  1. FLUOXETINE (FLUOXETINE) [Suspect]
     Indication: ANXIETY DISORDER
     Dosage: (DF)
  2. DIAZEPAM (DIAZEPAM) [Suspect]
     Indication: ANXIETY DISORDER
     Dosage: (DF)
  3. ALPRAZOLAM (ALPRAZOLAM) [Suspect]
     Indication: ANXIETY DISORDER
     Dosage: (DF)
  4. TOFISOPAM [Suspect]
     Indication: ANXIETY DISORDER
     Dosage: (DF)

REACTIONS (2)
  - Deep vein thrombosis [None]
  - Post procedural complication [None]
